FAERS Safety Report 7803852-8 (Version None)
Quarter: 2011Q4

REPORT INFORMATION
  Report Type: 
  Country: None (occurrence: None)
  Receive Date: 20111010
  Receipt Date: 20110927
  Transmission Date: 20120403
  Serious: Yes (Other)
  Sender: FDA-Public Use
  Company Number: BR-RANBAXY-2011R5-48629

PATIENT

DRUGS (5)
  1. CEFUROXIME AXETIL [Suspect]
     Indication: RESPIRATORY TRACT INFECTION
     Dosage: 5 ML, BID
     Route: 048
     Dates: start: 20110923, end: 20110925
  2. ALIVIUM [Concomitant]
     Indication: PYREXIA
     Dosage: UNK
     Route: 048
  3. DECADRON [Concomitant]
     Indication: PRODUCT USED FOR UNKNOWN INDICATION
     Dosage: 10 ML, BID
     Route: 065
     Dates: start: 20110923, end: 20110925
  4. DESLORATADINE [Concomitant]
     Indication: COUGH
     Dosage: 5 ML, BID
     Route: 065
  5. DESLORATADINE [Concomitant]
     Indication: NASAL CONGESTION
     Dosage: 5 ML, QD
     Route: 048

REACTIONS (6)
  - OCULAR HYPERAEMIA [None]
  - EYE SWELLING [None]
  - OEDEMA MOUTH [None]
  - ORAL MUCOSAL ERYTHEMA [None]
  - EYE OEDEMA [None]
  - SWELLING FACE [None]
